FAERS Safety Report 23378930 (Version 2)
Quarter: 2024Q1

REPORT INFORMATION
  Report Type: Spontaneous
  Country: US (occurrence: US)
  Receive Date: 20240108
  Receipt Date: 20240319
  Transmission Date: 20240409
  Serious: Yes (Other)
  Sender: FDA-Public Use
  Company Number: US-MARINUS PHARMACEUTICALS, INC.-MAR2023000169

PATIENT

DRUGS (2)
  1. ZTALMY [Suspect]
     Active Substance: GANAXOLONE
     Indication: Product used for unknown indication
     Dosage: 8 MILLILITER, BID
     Route: 048
  2. ZTALMY [Suspect]
     Active Substance: GANAXOLONE
     Dosage: 10 MILLILITER, BID
     Route: 048

REACTIONS (2)
  - Change in seizure presentation [Unknown]
  - Drug ineffective [Unknown]
